FAERS Safety Report 4742422-5 (Version None)
Quarter: 2005Q3

REPORT INFORMATION
  Report Type: 
  Country: None (occurrence: None)
  Receive Date: 20050808
  Receipt Date: 20050726
  Transmission Date: 20060218
  Serious: Yes (Life-Threatening, Hospitalization, Disabling, Other)
  Sender: FDA-Public Use
  Company Number: HQWYE533726JUL05

PATIENT
  Age: 67 Year
  Sex: Male
  Weight: 84.9 kg

DRUGS (8)
  1. RAPAMUNE [Suspect]
     Indication: RENAL TRANSPLANT
     Dosage: 3 MG 1X PER 1 DAY
  2. VALTREX [Suspect]
     Indication: HERPES ZOSTER
     Dosage: 1 G 3X PER 1 DAY, ORAL
     Route: 048
     Dates: start: 20050620, end: 20050623
  3. ZETIA [Concomitant]
  4. MAGNESIUM OXIDE (MAGNESIUM OXIDE) [Concomitant]
  5. LISINOPRIL [Concomitant]
  6. CELLCEPT [Concomitant]
  7. LOPRESSOR [Concomitant]
  8. NEURONTIN [Concomitant]

REACTIONS (5)
  - BLOOD CREATININE INCREASED [None]
  - DRUG INTERACTION [None]
  - DRUG LEVEL INCREASED [None]
  - HYPERSENSITIVITY [None]
  - RENAL FAILURE [None]
